FAERS Safety Report 6537010-4 (Version None)
Quarter: 2010Q1

REPORT INFORMATION
  Report Type: 
  Country: None (occurrence: None)
  Receive Date: 20100107
  Receipt Date: 20091103
  Transmission Date: 20100710
  Serious: Yes (Other)
  Sender: FDA-Public Use
  Company Number: 003659

PATIENT
  Age: 78 Year
  Sex: Male

DRUGS (2)
  1. PREDNISOLONE [Suspect]
     Indication: PEMPHIGOID
  2. CYCLOSPORINE [Suspect]
     Indication: PEMPHIGOID

REACTIONS (4)
  - FUNGAL INFECTION [None]
  - LUNG NEOPLASM [None]
  - NOCARDIOSIS [None]
  - PNEUMOCYSTIS JIROVECI PNEUMONIA [None]
